FAERS Safety Report 8820930 (Version 1)
Quarter: 2012Q4

REPORT INFORMATION
  Report Type: 
  Country: US (occurrence: US)
  Receive Date: 20121002
  Receipt Date: 20121002
  Transmission Date: 20130627
  Serious: Yes (Other)
  Sender: FDA-Public Use
  Company Number: US-009507513-1208USA008657

PATIENT

DRUGS (2)
  1. ISENTRESS [Suspect]
     Dosage: UNK UNK, bid
     Route: 048
  2. TRUVADA [Suspect]
     Dosage: UNK, qd

REACTIONS (2)
  - Tinnitus [Recovering/Resolving]
  - Sleep disorder [Unknown]
